FAERS Safety Report 13093022 (Version 1)
Quarter: 2017Q1

REPORT INFORMATION
  Report Type: Spontaneous
  Country: US (occurrence: US)
  Receive Date: 20170105
  Receipt Date: 20170105
  Transmission Date: 20170428
  Serious: No
  Sender: FDA-Public Use
  Company Number: None

PATIENT
  Age: 63 Year
  Sex: Male
  Weight: 67.7 kg

DRUGS (2)
  1. CLOTRIMAZOLE. [Suspect]
     Active Substance: CLOTRIMAZOLE
     Indication: ANGIOEDEMA
     Dosage: APPLY THIN LAYER
     Route: 061
     Dates: start: 20161217, end: 20161217
  2. TOLNAFTATE. [Suspect]
     Active Substance: TOLNAFTATE
     Indication: ANGIOEDEMA
     Dosage: APPLY THINK LAYER
     Route: 061
     Dates: start: 20161217, end: 20161217

REACTIONS (2)
  - Dyspnoea [None]
  - Angioedema [None]

NARRATIVE: CASE EVENT DATE: 20161217
